FAERS Safety Report 25311137 (Version 1)
Quarter: 2025Q2

REPORT INFORMATION
  Report Type: Spontaneous
  Country: CH (occurrence: CH)
  Receive Date: 20250514
  Receipt Date: 20250514
  Transmission Date: 20250717
  Serious: Yes (Other)
  Sender: IMMUNOCORE
  Company Number: CH-IMMUNOCORE, LTD.-2025-IMC-003632

PATIENT

DRUGS (13)
  1. KIMMTRAK [Suspect]
     Active Substance: TEBENTAFUSP-TEBN
     Indication: Uveal melanoma
     Route: 065
     Dates: start: 20231115
  2. KIMMTRAK [Suspect]
     Active Substance: TEBENTAFUSP-TEBN
     Route: 065
  3. KIMMTRAK [Suspect]
     Active Substance: TEBENTAFUSP-TEBN
     Route: 065
     Dates: start: 20240711
  4. KIMMTRAK [Suspect]
     Active Substance: TEBENTAFUSP-TEBN
     Route: 065
     Dates: start: 20240509, end: 20240509
  5. KIMMTRAK [Suspect]
     Active Substance: TEBENTAFUSP-TEBN
     Route: 065
     Dates: start: 20240530, end: 20240530
  6. KIMMTRAK [Suspect]
     Active Substance: TEBENTAFUSP-TEBN
     Route: 065
     Dates: start: 20240731
  7. KIMMTRAK [Suspect]
     Active Substance: TEBENTAFUSP-TEBN
     Route: 065
     Dates: start: 20240731
  8. KIMMTRAK [Suspect]
     Active Substance: TEBENTAFUSP-TEBN
     Route: 065
     Dates: start: 20240807, end: 20240807
  9. KIMMTRAK [Suspect]
     Active Substance: TEBENTAFUSP-TEBN
     Route: 065
  10. ARTICHAUT [CYNARA CARDUNCULUS EXTRACT] [Concomitant]
     Indication: Product used for unknown indication
  11. DAFALGAN [Concomitant]
     Active Substance: ACETAMINOPHEN
     Indication: Product used for unknown indication
  12. OMEPRAZOLE [Concomitant]
     Active Substance: OMEPRAZOLE
     Indication: Product used for unknown indication
  13. METFORMIN HYDROCHLORIDE [Concomitant]
     Active Substance: METFORMIN HYDROCHLORIDE
     Indication: Product used for unknown indication

REACTIONS (2)
  - Malignant neoplasm progression [Unknown]
  - Product dose omission issue [Recovered/Resolved]

NARRATIVE: CASE EVENT DATE: 20231115
